FAERS Safety Report 13552068 (Version 2)
Quarter: 2017Q3

REPORT INFORMATION
  Report Type: Report from Study
  Country: CL (occurrence: CL)
  Receive Date: 20170516
  Receipt Date: 20170815
  Transmission Date: 20171127
  Serious: Yes (Other)
  Sender: FDA-Public Use
  Company Number: PHHY2014CL159554

PATIENT
  Age: 33 Year
  Sex: Female

DRUGS (3)
  1. GILENYA [Suspect]
     Active Substance: FINGOLIMOD HYDROCHLORIDE
     Indication: MULTIPLE SCLEROSIS
     Dosage: 0.5 MG, QD
     Route: 048
     Dates: start: 20140905, end: 201610
  2. TOPIRAMATO [Concomitant]
     Active Substance: TOPIRAMATE
     Indication: EPILEPSY
     Dosage: 100 MG
     Route: 065
     Dates: start: 20140903
  3. SERTRALINE [Concomitant]
     Active Substance: SERTRALINE HYDROCHLORIDE
     Indication: ANXIETY DISORDER
     Dosage: 50 MG, UNK
     Route: 065
     Dates: start: 20140903

REACTIONS (9)
  - Sleep disorder [Unknown]
  - Gait disturbance [Recovered/Resolved]
  - Myalgia [Recovered/Resolved]
  - Arrhythmia [Recovered/Resolved]
  - Back pain [Recovered/Resolved]
  - Palpitations [Recovered/Resolved]
  - Abdominal distension [Not Recovered/Not Resolved]
  - Astigmatism [Not Recovered/Not Resolved]
  - Headache [Recovered/Resolved]

NARRATIVE: CASE EVENT DATE: 20140912
